FAERS Safety Report 17787804 (Version 1)
Quarter: 2020Q2

REPORT INFORMATION
  Report Type: Spontaneous
  Country: US (occurrence: US)
  Receive Date: 20200514
  Receipt Date: 20200514
  Transmission Date: 20200714
  Serious: No
  Sender: FDA-Public Use
  Company Number: US-PERRIGO-19US012942

PATIENT
  Age: 13 Year
  Sex: Female
  Weight: 44.44 kg

DRUGS (2)
  1. TRIAMCINOLONE ACETONIDE. [Suspect]
     Active Substance: TRIAMCINOLONE ACETONIDE
     Indication: ECZEMA
     Dosage: SMALL AMOUNT, QD
     Route: 061
     Dates: start: 201910, end: 20191027
  2. TRIAMCINOLONE ACETONIDE. [Suspect]
     Active Substance: TRIAMCINOLONE ACETONIDE
     Dosage: SMALL AMOUNT, BID
     Route: 061
     Dates: start: 20191028

REACTIONS (3)
  - Application site erythema [Not Recovered/Not Resolved]
  - Exposure via eye contact [Not Recovered/Not Resolved]
  - Application site irritation [Not Recovered/Not Resolved]

NARRATIVE: CASE EVENT DATE: 201910
